FAERS Safety Report 8887059 (Version 1)
Quarter: 2012Q4

REPORT INFORMATION
  Report Type: 
  Country: CH (occurrence: CH)
  Receive Date: 20121101
  Receipt Date: 20121101
  Transmission Date: 20130627
  Serious: Yes (Congenital Anomaly, Other)
  Sender: FDA-Public Use
  Company Number: PHHY2012CH098890

PATIENT
  Sex: Male
  Weight: 2.03 kg

DRUGS (3)
  1. CLARITHROMYCIN [Suspect]
     Route: 064
  2. AMOXICILLIN\CLAVULANATE POTASSIUM [Suspect]
     Route: 064
  3. YASMIN [Suspect]
     Route: 064
     Dates: start: 20111014, end: 20111104

REACTIONS (3)
  - Foetal growth restriction [Recovered/Resolved]
  - Premature baby [Recovered/Resolved]
  - Foetal exposure during pregnancy [Recovered/Resolved]
